FAERS Safety Report 7070934-0 (Version None)
Quarter: 2010Q4

REPORT INFORMATION
  Report Type: 
  Country: None (occurrence: None)
  Receive Date: 20101029
  Receipt Date: 20101018
  Transmission Date: 20110411
  Serious: Yes (Hospitalization, Disabling)
  Sender: FDA-Public Use
  Company Number: PHHY2010TR64353

PATIENT
  Age: 80 Year
  Sex: Female

DRUGS (3)
  1. ACLASTA [Suspect]
     Dosage: 5 MG
     Route: 042
     Dates: start: 20100927
  2. VERMIDON [Concomitant]
     Dosage: UNK
  3. ANTIHYPERTENSIVE DRUGS [Concomitant]
     Dosage: UNK

REACTIONS (4)
  - ABASIA [None]
  - FLUSHING [None]
  - MYALGIA [None]
  - MYOPATHY [None]
